FAERS Safety Report 6852027-8 (Version None)
Quarter: 2010Q3

REPORT INFORMATION
  Report Type: 
  Country: None (occurrence: None)
  Receive Date: 20100717
  Receipt Date: 20071105
  Transmission Date: 20110219
  Serious: No
  Sender: FDA-Public Use
  Company Number: US-PFIZER INC-2007094164

PATIENT
  Sex: Male

DRUGS (16)
  1. CHANTIX [Suspect]
     Indication: SMOKING CESSATION THERAPY
     Dates: start: 20071001
  2. ACYCLOVIR [Concomitant]
     Indication: HERPES VIRUS INFECTION
  3. BACTRIM [Concomitant]
  4. DIAZEPAM [Concomitant]
  5. ALL OTHER THERAPEUTIC PRODUCTS [Concomitant]
  6. GABAPENTIN [Concomitant]
  7. HYDROCORTISONE [Concomitant]
  8. ITRACONAZOLE [Concomitant]
  9. KALETRA [Concomitant]
  10. LIDOCAINE [Concomitant]
  11. MARINOL [Concomitant]
  12. PREVACID [Concomitant]
  13. VIREAD [Concomitant]
  14. VITAMIN C [Concomitant]
  15. CENTRUM SILVER [Concomitant]
  16. VITAMIN B COMPLEX CAP [Concomitant]

REACTIONS (5)
  - ABDOMINAL DISCOMFORT [None]
  - DIARRHOEA [None]
  - FLATULENCE [None]
  - MUSCLE SPASMS [None]
  - WEIGHT INCREASED [None]
